FAERS Safety Report 9323025 (Version 3)
Quarter: 2014Q1

REPORT INFORMATION
  Report Type: Spontaneous
  Country: US (occurrence: US)
  Receive Date: 20130603
  Receipt Date: 20140226
  Transmission Date: 20141002
  Serious: Yes (Hospitalization)
  Sender: FDA-Public Use
  Company Number: US-B.I. PHARMACEUTICALS,INC./RIDGEFIELD-2013-BI-14866BP

PATIENT
  Age: 54 Year
  Sex: Male
  Weight: 79.83 kg

DRUGS (26)
  1. PRADAXA [Suspect]
     Indication: ATRIAL FIBRILLATION
     Dosage: 300 MG
     Route: 048
     Dates: start: 20110406, end: 201111
  2. COMBIVENT [Concomitant]
     Indication: DYSPNOEA
     Route: 065
  3. COMBIVENT [Concomitant]
     Indication: WHEEZING
  4. ASPIRIN [Concomitant]
     Dosage: 325 MG
     Route: 048
  5. DOCUSATE SODIUM [Concomitant]
     Dosage: 100 MG
     Route: 048
  6. LANOXIN [Concomitant]
     Dosage: 0.125 MG
     Route: 048
  7. INSPRA [Concomitant]
     Dosage: 25 MG
     Route: 048
  8. ULORIC [Concomitant]
     Dosage: 40 MG
     Route: 048
  9. FERROUS SULFATE [Concomitant]
     Dosage: 975 MG
     Route: 048
  10. FUROSEMIDE [Concomitant]
     Route: 065
  11. LOPID [Concomitant]
     Dosage: 600 MG
     Route: 048
  12. GLUCOTROL [Concomitant]
     Dosage: 5 MG
     Route: 048
  13. APRESOLINE [Concomitant]
     Dosage: 150 MG
     Route: 048
  14. ISORDIL [Concomitant]
     Dosage: 30 MG
     Route: 048
  15. CORDARONE [Concomitant]
     Dosage: 400 MG
     Route: 048
  16. PRIMACOR IN DEXTROSE [Concomitant]
     Route: 042
  17. PRILOSEC [Concomitant]
     Dosage: 40 MG
     Route: 048
  18. VITAMIN D [Concomitant]
     Dosage: 1666.6667 U
     Route: 048
  19. FLOMAX [Concomitant]
     Dosage: 0.4 MG
     Route: 048
  20. REMERON [Concomitant]
     Dosage: 30 MG
     Route: 048
  21. SPIRIVA [Concomitant]
     Dosage: 10 MCG
     Route: 055
  22. QUINIDINE GLUCONATE [Concomitant]
     Dosage: 972 MG
     Route: 048
  23. DEMADEX [Concomitant]
     Dosage: 40 MG
     Route: 048
  24. MIRALAX [Concomitant]
     Route: 048
  25. KLOR-CON [Concomitant]
     Dosage: 80 MEQ
     Route: 048
  26. SENNA [Concomitant]
     Dosage: 17.2 MG
     Route: 048

REACTIONS (3)
  - Gastrointestinal haemorrhage [Unknown]
  - Haemorrhagic anaemia [Unknown]
  - Epistaxis [Unknown]
